FAERS Safety Report 5700082-0 (Version None)
Quarter: 2008Q2

REPORT INFORMATION
  Report Type: 
  Country: None (occurrence: None)
  Receive Date: 20080410
  Receipt Date: 20080401
  Transmission Date: 20081010
  Serious: Yes (Hospitalization)
  Sender: FDA-Public Use
  Company Number: FR-ROCHE-556417

PATIENT
  Age: 34 Year
  Sex: Female

DRUGS (3)
  1. BONIVA [Suspect]
     Indication: OSTEOPOROSIS PROPHYLAXIS
     Dosage: FORM: INJECTABLE SOLUTION
     Route: 042
     Dates: start: 20070501, end: 20070601
  2. PREDNISONE [Concomitant]
  3. VENTOLIN [Concomitant]

REACTIONS (2)
  - DYSPEPSIA [None]
  - RESPIRATORY DISORDER [None]
